FAERS Safety Report 8375252-6 (Version None)
Quarter: 2012Q2

REPORT INFORMATION
  Report Type: 
  Country: None (occurrence: None)
  Receive Date: 20120522
  Receipt Date: 20120514
  Transmission Date: 20120825
  Serious: Yes (Hospitalization)
  Sender: FDA-Public Use
  Company Number: US-BIOGENIDEC-2012BI014762

PATIENT
  Age: 34 Year
  Sex: Female

DRUGS (1)
  1. TYSABRI [Suspect]
     Indication: MULTIPLE SCLEROSIS
     Route: 042
     Dates: start: 20100226

REACTIONS (6)
  - BRONCHITIS [None]
  - LIGAMENT SPRAIN [None]
  - FOOT FRACTURE [None]
  - SINUSITIS [None]
  - PHARYNGITIS STREPTOCOCCAL [None]
  - NASOPHARYNGITIS [None]
